FAERS Safety Report 15781564 (Version 1)
Quarter: 2019Q1

REPORT INFORMATION
  Report Type: Spontaneous
  Country: CA (occurrence: CA)
  Receive Date: 20190102
  Receipt Date: 20190102
  Transmission Date: 20190417
  Serious: Yes (Other)
  Sender: FDA-Public Use
  Company Number: CA-BAYER-2018-242868

PATIENT
  Sex: Female

DRUGS (4)
  1. LUPRON DEPOT [Suspect]
     Active Substance: LEUPROLIDE ACETATE
     Indication: MENORRHAGIA
     Route: 030
  2. ALEVE [Suspect]
     Active Substance: NAPROXEN SODIUM
     Indication: PRODUCT USED FOR UNKNOWN INDICATION
  3. CLONAZEPAM. [Suspect]
     Active Substance: CLONAZEPAM
     Indication: PRODUCT USED FOR UNKNOWN INDICATION
  4. PAROXETINE. [Suspect]
     Active Substance: PAROXETINE
     Indication: PRODUCT USED FOR UNKNOWN INDICATION

REACTIONS (16)
  - Fatigue [None]
  - Muscle spasms [None]
  - Constipation [None]
  - Vision blurred [None]
  - Amnesia [None]
  - Hyperhidrosis [None]
  - Insomnia [None]
  - Loss of personal independence in daily activities [None]
  - Depression [None]
  - Hot flush [None]
  - Anger [None]
  - Depressed mood [None]
  - Feeling abnormal [None]
  - Nausea [None]
  - Nervousness [None]
  - Suicide attempt [None]
